FAERS Safety Report 11781808 (Version 2)
Quarter: 2015Q4

REPORT INFORMATION
  Report Type: Report from Study
  Country: US (occurrence: US)
  Receive Date: 20151126
  Receipt Date: 20151228
  Transmission Date: 20160305
  Serious: Yes (Other)
  Sender: FDA-Public Use
  Company Number: PHEH2015US024694

PATIENT
  Sex: Female
  Weight: 81.63 kg

DRUGS (1)
  1. GILENYA [Suspect]
     Active Substance: FINGOLIMOD HYDROCHLORIDE
     Indication: MULTIPLE SCLEROSIS
     Dosage: 0.5 MG, QD
     Route: 048
     Dates: start: 20150529

REACTIONS (7)
  - Drug dose omission [Recovered/Resolved]
  - Vision blurred [Unknown]
  - Migraine [Unknown]
  - Nausea [Recovering/Resolving]
  - Visual impairment [Unknown]
  - White blood cell count decreased [Recovering/Resolving]
  - Vomiting [Recovering/Resolving]
